FAERS Safety Report 6334259-0 (Version None)
Quarter: 2009Q3

REPORT INFORMATION
  Report Type: 
  Country: None (occurrence: None)
  Receive Date: 20090829
  Receipt Date: 20090723
  Transmission Date: 20100115
  Serious: No
  Sender: FDA-Public Use
  Company Number: US-ABBOTT-09P-163-0587679-00

PATIENT
  Sex: Male

DRUGS (7)
  1. SIMCOR [Suspect]
     Indication: CYTOGENETIC ABNORMALITY
     Dosage: 1 - 500/20MG DAILY AT BEDTIME
     Route: 048
     Dates: start: 20090401
  2. ASPIRIN [Suspect]
     Indication: DRUG USE FOR UNKNOWN INDICATION
     Route: 048
  3. ASPIRIN [Suspect]
     Route: 048
  4. M.V.I. [Concomitant]
     Indication: DRUG USE FOR UNKNOWN INDICATION
  5. CALTRATE [Concomitant]
     Indication: DRUG USE FOR UNKNOWN INDICATION
     Route: 048
  6. FOLIC ACID [Concomitant]
     Indication: DRUG USE FOR UNKNOWN INDICATION
  7. VITAMIN B-12 [Concomitant]
     Indication: DRUG USE FOR UNKNOWN INDICATION

REACTIONS (2)
  - HAEMORRHAGE [None]
  - INCREASED TENDENCY TO BRUISE [None]
